FAERS Safety Report 11583404 (Version 1)
Quarter: 2015Q4

REPORT INFORMATION
  Report Type: Spontaneous
  Country: US (occurrence: US)
  Receive Date: 20151001
  Receipt Date: 20151001
  Transmission Date: 20160304
  Serious: Yes (Other)
  Sender: FDA-Public Use
  Company Number: US-ACCORD-034022

PATIENT

DRUGS (1)
  1. CARBIDOPA-LEVODOPA ACCORD [Suspect]
     Active Substance: CARBIDOPA\LEVODOPA
     Indication: PRODUCT USED FOR UNKNOWN INDICATION
     Dosage: CARBIDOPA-LEVODOPA ER TABLETS

REACTIONS (2)
  - Immobile [Unknown]
  - Therapeutic response delayed [Unknown]
